FAERS Safety Report 4868195-3 (Version None)
Quarter: 2005Q4

REPORT INFORMATION
  Report Type: 
  Country: None (occurrence: None)
  Receive Date: 20051229
  Receipt Date: 20051222
  Transmission Date: 20060501
  Serious: Yes (Hospitalization)
  Sender: FDA-Public Use
  Company Number: DE-BRISTOL-MYERS SQUIBB COMPANY-13228549

PATIENT
  Age: 62 Year
  Sex: Male

DRUGS (4)
  1. ERBITUX [Suspect]
     Indication: COLORECTAL CANCER METASTATIC
     Dosage: DISCONTINUED ON 12-JUL-05 DUE TO TUMOR PROGRESSION
     Route: 041
     Dates: start: 20050517, end: 20050712
  2. IRINOTECAN HCL [Suspect]
     Indication: COLORECTAL CANCER METASTATIC
     Dosage: DISCONTINUED ON 05-JUL-05 DUE TO TUMOR PROGRESSION
     Dates: start: 20050517, end: 20050705
  3. KEVATRIL [Concomitant]
     Dates: start: 20050712
  4. ATROPINE SULFATE [Concomitant]
     Dates: start: 20050712

REACTIONS (2)
  - ILEUS [None]
  - VOMITING [None]
